FAERS Safety Report 12439727 (Version 1)
Quarter: 2016Q2

REPORT INFORMATION
  Report Type: Spontaneous
  Country: US (occurrence: US)
  Receive Date: 20160606
  Receipt Date: 20160606
  Transmission Date: 20160815
  Serious: Yes (Life-Threatening, Hospitalization, Other)
  Sender: FDA-Public Use
  Company Number: US-PFIZER INC-2016283981

PATIENT
  Age: 50 Year
  Sex: Female
  Weight: 92.99 kg

DRUGS (3)
  1. XANAX [Suspect]
     Active Substance: ALPRAZOLAM
     Dosage: UNK
  2. METFORMIN [Interacting]
     Active Substance: METFORMIN HYDROCHLORIDE
     Dosage: UNK
  3. LATUDA [Interacting]
     Active Substance: LURASIDONE HYDROCHLORIDE
     Dosage: 800 MG, UNK

REACTIONS (9)
  - Drug interaction [Unknown]
  - Seizure [Unknown]
  - Weight increased [Not Recovered/Not Resolved]
  - Coma [Unknown]
  - Facial bones fracture [Unknown]
  - Limb crushing injury [Unknown]
  - Joint dislocation [Unknown]
  - Cerebrovascular accident [Unknown]
  - Back injury [Unknown]

NARRATIVE: CASE EVENT DATE: 2014
